FAERS Safety Report 25273656 (Version 1)
Quarter: 2025Q2

REPORT INFORMATION
  Report Type: Spontaneous
  Country: US (occurrence: None)
  Receive Date: 20250505
  Receipt Date: 20250505
  Transmission Date: 20250716
  Serious: Yes (Other)
  Sender: FDA-CTU
  Company Number: None

PATIENT
  Sex: Female

DRUGS (11)
  1. SIMLANDI [Suspect]
     Active Substance: ADALIMUMAB-RYVK
     Indication: Psoriatic arthropathy
     Dosage: OTHER QUANTITY : INJECT 1 PEN;?FREQUENCY : EVERY OTHER WEEK;?
     Route: 058
     Dates: start: 20250109
  2. ALBUTEROL [Concomitant]
     Active Substance: ALBUTEROL
  3. BENZONATATE [Concomitant]
     Active Substance: BENZONATATE
  4. CITALOPRAM [Concomitant]
     Active Substance: CITALOPRAM
  5. CLOTRIMAZOLE TRO [Concomitant]
  6. HUMALOG [Concomitant]
     Active Substance: INSULIN LISPRO
  7. HUMIRA [Concomitant]
     Active Substance: ADALIMUMAB
  8. HUMIRA [Suspect]
     Active Substance: ADALIMUMAB
  9. METHYLPREDNISOLONE [Concomitant]
     Active Substance: METHYLPREDNISOLONE
  10. METOPROL SUC [Concomitant]
  11. NOVOLOG [Suspect]
     Active Substance: INSULIN ASPART

REACTIONS (3)
  - Surgery [None]
  - Intentional dose omission [None]
  - Pain [None]
